FAERS Safety Report 18814379 (Version 2)
Quarter: 2021Q1

REPORT INFORMATION
  Report Type: Spontaneous
  Country: US (occurrence: US)
  Receive Date: 20210201
  Receipt Date: 20210318
  Transmission Date: 20210419
  Serious: No
  Sender: FDA-Public Use
  Company Number: US-GLAXOSMITHKLINE-US2021015569

PATIENT
  Sex: Female

DRUGS (1)
  1. BENLYSTA [Suspect]
     Active Substance: BELIMUMAB
     Indication: SYSTEMIC LUPUS ERYTHEMATOSUS
     Dosage: UNK
     Dates: start: 202007

REACTIONS (8)
  - Accidental underdose [Unknown]
  - Exposure via skin contact [Unknown]
  - Injection site pain [Unknown]
  - Accidental exposure to product [Unknown]
  - Injection site urticaria [Unknown]
  - Product complaint [Unknown]
  - Injection site erythema [Unknown]
  - Injection site swelling [Unknown]
